FAERS Safety Report 5366709-0 (Version None)
Quarter: 2007Q2

REPORT INFORMATION
  Report Type: 
  Country: None (occurrence: None)
  Receive Date: 20070622
  Receipt Date: 20060424
  Transmission Date: 20071010
  Serious: No
  Sender: FDA-Public Use
  Company Number: US-ASTRAZENECA-2006UW07374

PATIENT
  Age: 40 Year
  Sex: Female
  Weight: 161 kg

DRUGS (2)
  1. RHINOCORT [Suspect]
     Indication: CHRONIC SINUSITIS
     Dosage: 1 SPRAY PER NOSTRIL QD
     Route: 045
     Dates: start: 20060401
  2. ROGAINE [Concomitant]

REACTIONS (2)
  - WEIGHT INCREASED [None]
  - WEIGHT LOSS POOR [None]
